FAERS Safety Report 6337147-9 (Version None)
Quarter: 2009Q3

REPORT INFORMATION
  Report Type: 
  Country: None (occurrence: None)
  Receive Date: 20090831
  Receipt Date: 20090821
  Transmission Date: 20100115
  Serious: Yes (Life-Threatening, Hospitalization)
  Sender: FDA-Public Use
  Company Number: 2009AL005168

PATIENT
  Age: 86 Year
  Sex: Female

DRUGS (10)
  1. GABAPENTIN [Suspect]
     Indication: NEURALGIA
     Dosage: 300 MG; TID; PO
     Route: 048
     Dates: start: 20090714, end: 20090717
  2. TRAMADOL HCL [Concomitant]
  3. OMEPRAZOLE [Concomitant]
  4. CLOPIDOGREL [Concomitant]
  5. FUROSEMIDE [Concomitant]
  6. ZOPICLONE [Concomitant]
  7. MIRTAZAPINE [Concomitant]
  8. SIMVASTATIN [Concomitant]
  9. ALENDRONIC ACID [Concomitant]
  10. PARACETAMOL [Concomitant]

REACTIONS (6)
  - ALANINE AMINOTRANSFERASE INCREASED [None]
  - CONFUSIONAL STATE [None]
  - DEHYDRATION [None]
  - HEPATIC ENCEPHALOPATHY [None]
  - MALAISE [None]
  - MYOCLONUS [None]
